FAERS Safety Report 10158657 (Version 1)
Quarter: 2014Q2

REPORT INFORMATION
  Report Type: Report from Study
  Country: CN (occurrence: CN)
  Receive Date: 20140508
  Receipt Date: 20140508
  Transmission Date: 20141212
  Serious: Yes (Other)
  Sender: FDA-Public Use
  Company Number: CN-ROCHE-1392829

PATIENT
  Sex: 0

DRUGS (2)
  1. CAPECITABINE [Suspect]
     Indication: GASTRIC CANCER
     Dosage: ON DAYS 1-14
     Route: 048
  2. OXALIPLATIN [Suspect]
     Indication: GASTRIC CANCER
     Dosage: ON DAY 1
     Route: 040

REACTIONS (7)
  - Leukopenia [Unknown]
  - Thrombocytopenia [Unknown]
  - Anaemia [Unknown]
  - Nausea [Unknown]
  - Vomiting [Unknown]
  - Gastric perforation [Unknown]
  - Palmar-plantar erythrodysaesthesia syndrome [Unknown]
